FAERS Safety Report 8005300-4 (Version None)
Quarter: 2011Q4

REPORT INFORMATION
  Report Type: 
  Country: None (occurrence: None)
  Receive Date: 20111223
  Receipt Date: 20111215
  Transmission Date: 20120403
  Serious: Yes (Hospitalization)
  Sender: FDA-Public Use
  Company Number: FR-JNJFOC-20111208500

PATIENT
  Sex: Female

DRUGS (10)
  1. ECONAZOLE NITRATE [Concomitant]
     Indication: WOUND
     Dosage: 2 APPLICATIONS PER DAY
     Route: 003
     Dates: start: 20111018
  2. ACETAMINOPHEN [Concomitant]
     Route: 065
  3. SPECIAFOLDINE [Concomitant]
     Route: 065
  4. DURAGESIC-100 [Suspect]
     Indication: RHEUMATOID ARTHRITIS
     Route: 062
  5. METHOTREXATE SODIUM [Concomitant]
     Route: 065
  6. RABEPRAZOLE SODIUM [Concomitant]
     Route: 065
  7. AMLODIPINE BESYLATE [Concomitant]
     Route: 065
  8. PREVISCAN (FLUINDIONE) [Concomitant]
     Route: 065
     Dates: end: 20111101
  9. PREDNISONE TAB [Concomitant]
     Route: 065
  10. POLYETHYLENE GLYCOL [Concomitant]
     Route: 065

REACTIONS (3)
  - ABDOMINAL PAIN [None]
  - FAECALOMA [None]
  - CONSTIPATION [None]
